FAERS Safety Report 7692407-4 (Version None)
Quarter: 2011Q3

REPORT INFORMATION
  Report Type: 
  Country: None (occurrence: None)
  Receive Date: 20110818
  Receipt Date: 20110803
  Transmission Date: 20111222
  Serious: Yes (Hospitalization)
  Sender: FDA-Public Use
  Company Number: GB-BAYER-201036098GPV

PATIENT
  Age: 62 Year
  Sex: Male

DRUGS (9)
  1. PLACEBO [Suspect]
     Indication: RHEUMATOID ARTHRITIS
     Route: 042
     Dates: start: 20090910, end: 20090922
  2. METHOTREXATE [Concomitant]
  3. PHENYLPROPANOLAMINE HYDROCHLORIDE [Concomitant]
     Dosage: 25 MG (DAILY DOSE), ,
     Dates: start: 20100803, end: 20100807
  4. CHLORPHENIRAMINE MALEATE [Concomitant]
     Dosage: 2 MG (DAILY DOSE), ,
     Dates: start: 20100803, end: 20100807
  5. NAPROXEN [Suspect]
     Indication: PRODUCT USED FOR UNKNOWN INDICATION
     Dosage: 550 MG (DAILY DOSE), ,
  6. CORDARONE [Concomitant]
  7. PREDNISONE [Suspect]
     Indication: PRODUCT USED FOR UNKNOWN INDICATION
     Dosage: 5 MG (DAILY DOSE), ,
  8. ACETAMINOPHEN [Concomitant]
     Dosage: 300 MG (DAILY DOSE), ,
     Dates: start: 20100803, end: 20100807
  9. ASPIRIN [Concomitant]

REACTIONS (1)
  - UPPER GASTROINTESTINAL HAEMORRHAGE [None]
